FAERS Safety Report 21232118 (Version 1)
Quarter: 2022Q3

REPORT INFORMATION
  Report Type: Spontaneous
  Country: US (occurrence: None)
  Receive Date: 20220818
  Receipt Date: 20220818
  Transmission Date: 20221026
  Serious: No
  Sender: FDA-Public Use
  Company Number: None

PATIENT
  Age: 77 Year
  Sex: Female

DRUGS (2)
  1. JAKAFI [Suspect]
     Active Substance: RUXOLITINIB
     Dosage: FREQUENCY : TWICE A DAY;?
     Route: 048
     Dates: start: 20220707
  2. JAKAFI [Concomitant]
     Active Substance: RUXOLITINIB
     Dates: start: 20220707

REACTIONS (7)
  - Blood pressure increased [None]
  - Thinking abnormal [None]
  - Swelling face [None]
  - Headache [None]
  - Cardiac murmur [None]
  - Anxiety [None]
  - Paraesthesia [None]

NARRATIVE: CASE EVENT DATE: 20220817
